FAERS Safety Report 5557086-0 (Version None)
Quarter: 2007Q4

REPORT INFORMATION
  Report Type: 
  Country: None (occurrence: None)
  Receive Date: 20071211
  Receipt Date: 20071126
  Transmission Date: 20080405
  Serious: Yes (Other)
  Sender: FDA-Public Use
  Company Number: SPV1-2007-05085

PATIENT
  Sex: Male

DRUGS (1)
  1. PENTASA [Suspect]
     Indication: DIVERTICULUM
     Dosage: 1 G, 1X/DA:QD, RECTAL
     Route: 054
     Dates: start: 20070101, end: 20070101

REACTIONS (2)
  - INTERSTITIAL LUNG DISEASE [None]
  - OFF LABEL USE [None]
